FAERS Safety Report 10709167 (Version 1)
Quarter: 2015Q1

REPORT INFORMATION
  Report Type: Spontaneous
  Country: PH (occurrence: PH)
  Receive Date: 20150114
  Receipt Date: 20150114
  Transmission Date: 20150721
  Serious: Yes (Death)
  Sender: FDA-Public Use
  Company Number: PH-009507513-1501PHL003207

PATIENT
  Age: 39 Year
  Sex: Male

DRUGS (1)
  1. COZAAR [Suspect]
     Active Substance: LOSARTAN POTASSIUM
     Indication: HYPERTENSION
     Dosage: 50 MG, ONCE A DAY
     Route: 048

REACTIONS (2)
  - Death [Fatal]
  - Gun shot wound [Fatal]

NARRATIVE: CASE EVENT DATE: 201410
